FAERS Safety Report 8592980-8 (Version None)
Quarter: 2012Q3

REPORT INFORMATION
  Report Type: 
  Country: None (occurrence: None)
  Receive Date: 20120814
  Receipt Date: 20120807
  Transmission Date: 20120928
  Serious: Yes (Other)
  Sender: FDA-Public Use
  Company Number: US-FRI-1000030477

PATIENT
  Sex: Female
  Weight: 88 kg

DRUGS (6)
  1. DIOVAN HCT [Concomitant]
     Indication: HYPERTENSION
     Dosage: 80/12.5 MG
     Dates: end: 20120416
  2. DIOVAN HCT [Concomitant]
     Dosage: 160/25 MG
     Dates: start: 20120417
  3. WELLBUTRIN [Concomitant]
     Dosage: 300 MG
  4. SYNTHROID [Concomitant]
     Indication: HYPOTHYROIDISM
     Dosage: 100 MCG
     Dates: start: 20100801
  5. VIIBRYD [Suspect]
     Indication: ANXIETY
  6. VIIBRYD [Suspect]
     Indication: DEPRESSION
     Dosage: 10 MG
     Route: 048
     Dates: start: 20120502, end: 20120509

REACTIONS (10)
  - PALPITATIONS [None]
  - FEELING ABNORMAL [None]
  - HEADACHE [None]
  - CHEST DISCOMFORT [None]
  - FEELING JITTERY [None]
  - ANXIETY [None]
  - NAUSEA [None]
  - PARAESTHESIA [None]
  - BLOOD PRESSURE INCREASED [None]
  - AGITATION [None]
